FAERS Safety Report 23752876 (Version 1)
Quarter: 2024Q2

REPORT INFORMATION
  Report Type: Spontaneous
  Country: US (occurrence: US)
  Receive Date: 20240417
  Receipt Date: 20240417
  Transmission Date: 20240716
  Serious: Yes (Other)
  Sender: FDA-Public Use
  Company Number: US-SA-SAC20240416000351

PATIENT
  Age: 75 Year
  Sex: Male

DRUGS (13)
  1. KEVZARA [Suspect]
     Active Substance: SARILUMAB
     Indication: Polymyalgia rheumatica
     Dosage: 200 MG, QOW
     Route: 058
     Dates: start: 202307
  2. KEVZARA [Suspect]
     Active Substance: SARILUMAB
     Dosage: 200 MG, QOW
     Route: 058
     Dates: start: 202402
  3. PREDNISONE [Concomitant]
     Active Substance: PREDNISONE
     Dosage: UNK
  4. ARAVA [Concomitant]
     Active Substance: LEFLUNOMIDE
     Dosage: UNK
  5. COREG [Concomitant]
     Active Substance: CARVEDILOL
     Dosage: UNK
  6. GABAPENTIN [Concomitant]
     Active Substance: GABAPENTIN
     Dosage: UNK
  7. HYDROCODONE [Concomitant]
     Active Substance: HYDROCODONE
     Dosage: UNK
  8. LIPITOR [Concomitant]
     Active Substance: ATORVASTATIN CALCIUM
     Dosage: UNK
  9. PROLIA [Concomitant]
     Active Substance: DENOSUMAB
     Dosage: UNK
  10. SYNTHROID [Concomitant]
     Active Substance: LEVOTHYROXINE SODIUM
     Dosage: UNK
  11. UROXATRAL [Concomitant]
     Active Substance: ALFUZOSIN HYDROCHLORIDE
     Dosage: UNK
  12. WELLBUTRIN [Concomitant]
     Active Substance: BUPROPION HYDROCHLORIDE
     Dosage: UNK
  13. XANAX [Concomitant]
     Active Substance: ALPRAZOLAM
     Dosage: UNK

REACTIONS (4)
  - Arrhythmia [Unknown]
  - Renal failure [Not Recovered/Not Resolved]
  - Hypertension [Not Recovered/Not Resolved]
  - Product use in unapproved indication [Unknown]

NARRATIVE: CASE EVENT DATE: 20230701
